FAERS Safety Report 9440531 (Version 2)
Quarter: 2013Q3

REPORT INFORMATION
  Report Type: Spontaneous
  Country: US (occurrence: US)
  Receive Date: 20130805
  Receipt Date: 20130809
  Transmission Date: 20140515
  Serious: Yes (Death)
  Sender: FDA-Public Use
  Company Number: US-B.I. PHARMACEUTICALS,INC./RIDGEFIELD-2013-BI-23294BP

PATIENT
  Age: 9 Decade
  Sex: Female

DRUGS (5)
  1. PRADAXA [Suspect]
     Indication: ATRIAL FIBRILLATION
     Dosage: 150 MG
  2. LASIX [Concomitant]
  3. COREG (CARVEDILOL) [Concomitant]
  4. DIOVAN [Concomitant]
  5. ANTIVERT (MECLIZINE) [Concomitant]
     Indication: DIZZINESS

REACTIONS (4)
  - Cardiac failure congestive [Fatal]
  - Hypotension [Fatal]
  - Pneumonia [Fatal]
  - Haemorrhage [Fatal]
